FAERS Safety Report 7936206-4 (Version None)
Quarter: 2011Q4

REPORT INFORMATION
  Report Type: 
  Country: None (occurrence: None)
  Receive Date: 20111121
  Receipt Date: 20111110
  Transmission Date: 20120403
  Serious: Yes (Other)
  Sender: FDA-Public Use
  Company Number: DSU-2011-08439

PATIENT
  Age: 72 Year
  Sex: Female
  Weight: 95.2554 kg

DRUGS (3)
  1. VITAMIN B12 (CYANCOBALAMIN) (CYANOCOBALAMIN) [Concomitant]
  2. FISH OIL (FISH OIL) (FISH OIL) [Concomitant]
  3. BENICAR HCT [Suspect]
     Indication: HYPERTENSION
     Dosage: 40/12.5MG (QD) , PER ORAL
     Route: 048

REACTIONS (7)
  - ASTHENIA [None]
  - BLOOD CHOLESTEROL INCREASED [None]
  - DIZZINESS [None]
  - MACULAR DEGENERATION [None]
  - DYSPNOEA [None]
  - WEIGHT DECREASED [None]
  - HYPOTHYROIDISM [None]
